FAERS Safety Report 6003553-5 (Version None)
Quarter: 2008Q4

REPORT INFORMATION
  Report Type: 
  Country: None (occurrence: None)
  Receive Date: 20081216
  Receipt Date: 20081202
  Transmission Date: 20090506
  Serious: Yes (Hospitalization)
  Sender: FDA-Public Use
  Company Number: US-ELI_LILLY_AND_COMPANY-US200812000728

PATIENT
  Sex: Female

DRUGS (10)
  1. FORTEO [Suspect]
     Indication: OSTEOPOROSIS
     Dosage: 20 UG, DAILY (1/D)
     Dates: start: 20080707, end: 20080901
  2. FOSAMAX [Concomitant]
  3. DIOVAN [Concomitant]
  4. XALATAN [Concomitant]
  5. VITAMINS [Concomitant]
  6. ASPIRIN [Concomitant]
  7. ALEVE [Concomitant]
  8. CALCIUM [Concomitant]
  9. CHONDROITIN [Concomitant]
  10. GLUCOSAMINE [Concomitant]

REACTIONS (6)
  - HERPES ZOSTER [None]
  - HYPOAESTHESIA [None]
  - MUSCULOSKELETAL DISORDER [None]
  - PAIN [None]
  - RASH [None]
  - SCAR [None]
